FAERS Safety Report 5567798-0 (Version None)
Quarter: 2007Q4

REPORT INFORMATION
  Report Type: 
  Country: None (occurrence: None)
  Receive Date: 20071217
  Receipt Date: 20071204
  Transmission Date: 20080405
  Serious: Yes (Hospitalization)
  Sender: FDA-Public Use
  Company Number: 2007BI025619

PATIENT
  Age: 65 Year
  Sex: Female

DRUGS (1)
  1. AVONEX [Suspect]
     Indication: MULTIPLE SCLEROSIS
     Dosage: 30 UG;QW;IM
     Route: 030
     Dates: start: 19990701

REACTIONS (4)
  - CARDIAC FAILURE [None]
  - COLLAPSE OF LUNG [None]
  - CORONARY ARTERY OCCLUSION [None]
  - PROCEDURAL COMPLICATION [None]
